FAERS Safety Report 9797889 (Version 1)
Quarter: 2014Q1

REPORT INFORMATION
  Report Type: Spontaneous
  Country: FR (occurrence: FR)
  Receive Date: 20140106
  Receipt Date: 20140106
  Transmission Date: 20141002
  Serious: Yes (Hospitalization)
  Sender: FDA-Public Use
  Company Number: PHHY2013FR154429

PATIENT
  Age: 77 Year
  Sex: Male

DRUGS (12)
  1. NEORAL [Suspect]
     Indication: RENAL TRANSPLANT
     Dosage: 125 MG, DAILY
     Route: 048
     Dates: start: 201306
  2. NEORAL [Interacting]
     Dosage: 100 MG, UNK
     Route: 048
  3. NEORAL [Interacting]
     Dosage: 125 MG, 50MG IN THE MORNING AND 75 MG IN THE EVENING
     Route: 048
     Dates: start: 20131004
  4. MYCOPHENOLIC ACID [Interacting]
     Indication: RENAL TRANSPLANT
     Dosage: 360 MG, BID
     Route: 048
     Dates: start: 201306
  5. MYCOPHENOLIC ACID [Interacting]
     Dosage: 180 MG, BID
     Route: 048
     Dates: start: 201312
  6. INEXIUM [Concomitant]
     Dosage: 20 MG, QD
  7. BACTRIM FORTE [Concomitant]
     Dosage: 1 DF, TIW
  8. ROVALCYTE [Concomitant]
     Dosage: 450 MG, TIW
  9. ZOCOR [Concomitant]
     Dosage: 20 MG, QD
  10. MODOPAR [Concomitant]
     Dosage: 500 MG, DAILY
  11. XATRAL [Concomitant]
     Dosage: 10 MG, QD
  12. XALATAN [Concomitant]
     Dosage: UNK UKN, UNK

REACTIONS (8)
  - Lymphocyte count decreased [Recovered/Resolved]
  - Klebsiella infection [Recovered/Resolved]
  - Chills [Recovered/Resolved]
  - Hyperthermia [Recovered/Resolved]
  - Cough [Recovered/Resolved]
  - Dyspnoea [Recovered/Resolved]
  - Drug level increased [Recovered/Resolved]
  - Drug interaction [Recovered/Resolved]
